FAERS Safety Report 8357177-5 (Version None)
Quarter: 2012Q2

REPORT INFORMATION
  Report Type: 
  Country: None (occurrence: None)
  Receive Date: 20120514
  Receipt Date: 20120508
  Transmission Date: 20120825
  Serious: Yes (Other)
  Sender: FDA-Public Use
  Company Number: FR-PFIZER INC-2012107931

PATIENT
  Age: 68 Year
  Sex: Female

DRUGS (1)
  1. SUNITINIB MALATE [Suspect]
     Indication: METASTATIC RENAL CELL CARCINOMA
     Dosage: 50 MG/DAY FOR FOUR WEEKS
     Dates: start: 20101001

REACTIONS (5)
  - DIARRHOEA [None]
  - VOMITING [None]
  - OPTIC NEURITIS [None]
  - MUCOSAL INFLAMMATION [None]
  - NAUSEA [None]
